FAERS Safety Report 14970108 (Version 1)
Quarter: 2018Q2

REPORT INFORMATION
  Report Type: Spontaneous
  Country: TW (occurrence: TW)
  Receive Date: 20180604
  Receipt Date: 20180604
  Transmission Date: 20180711
  Serious: Yes (Death)
  Sender: FDA-Public Use
  Company Number: TW-PFIZER INC-2018062333

PATIENT
  Age: 34 Year
  Sex: Male

DRUGS (1)
  1. SUTENT [Suspect]
     Active Substance: SUNITINIB MALATE
     Indication: RENAL CELL CARCINOMA
     Dosage: 50 MG, 1X/DAY (QD)
     Route: 048
     Dates: start: 20171231

REACTIONS (9)
  - Decreased appetite [Unknown]
  - Yellow skin [Unknown]
  - Angular cheilitis [Unknown]
  - Death [Fatal]
  - Palmar-plantar erythrodysaesthesia syndrome [Unknown]
  - Blood pressure increased [Recovering/Resolving]
  - Gingival swelling [Unknown]
  - Mouth ulceration [Unknown]
  - Hair colour changes [Unknown]

NARRATIVE: CASE EVENT DATE: 2018
